FAERS Safety Report 20747816 (Version 2)
Quarter: 2022Q2

REPORT INFORMATION
  Report Type: Report from Study
  Country: FR (occurrence: FR)
  Receive Date: 20220425
  Receipt Date: 20220512
  Transmission Date: 20220720
  Serious: Yes (Other)
  Sender: FDA-Public Use
  Company Number: FR-GILEAD-2022-0578786

PATIENT
  Age: 64 Year
  Sex: Female
  Weight: 79 kg

DRUGS (3)
  1. SACITUZUMAB GOVITECAN [Suspect]
     Active Substance: SACITUZUMAB GOVITECAN
     Indication: Triple negative breast cancer
     Dosage: 7.5 MG/KG ON C1D1 AND C1D8
     Route: 042
     Dates: start: 20220308, end: 20220315
  2. SACITUZUMAB GOVITECAN [Suspect]
     Active Substance: SACITUZUMAB GOVITECAN
     Dosage: 7.5 MG/KG ON C2D1
     Route: 042
     Dates: start: 20220329, end: 20220329
  3. SACITUZUMAB GOVITECAN [Suspect]
     Active Substance: SACITUZUMAB GOVITECAN
     Dosage: 5.5 MG/KG ON C2D8
     Route: 042
     Dates: start: 20220405, end: 20220405

REACTIONS (6)
  - Cholestasis [Recovered/Resolved]
  - Cell death [Recovered/Resolved]
  - Mucosal inflammation [Recovered/Resolved]
  - Alopecia [Unknown]
  - Off label use [Recovered/Resolved]
  - Myalgia [Not Recovered/Not Resolved]

NARRATIVE: CASE EVENT DATE: 20220308
